FAERS Safety Report 7266848-3 (Version None)
Quarter: 2011Q1

REPORT INFORMATION
  Report Type: 
  Country: None (occurrence: None)
  Receive Date: 20110201
  Receipt Date: 20110121
  Transmission Date: 20110831
  Serious: Yes (Other)
  Sender: FDA-Public Use
  Company Number: US-SANOFI-AVENTIS-2011SA005089

PATIENT
  Age: 73 Year

DRUGS (4)
  1. UNFRACTIONATED HEPARIN [Concomitant]
  2. ABCIXIMAB [Concomitant]
  3. LOVENOX [Suspect]
     Route: 065
  4. ACETYLSALICYLATE LYSINE [Concomitant]

REACTIONS (2)
  - CARDIOGENIC SHOCK [None]
  - ACUTE MYOCARDIAL INFARCTION [None]
